FAERS Safety Report 5730677-X (Version None)
Quarter: 2008Q2

REPORT INFORMATION
  Report Type: 
  Country: None (occurrence: None)
  Receive Date: 20080507
  Receipt Date: 20080506
  Transmission Date: 20081010
  Serious: Yes (Other)
  Sender: FDA-Public Use
  Company Number: GB-TEVA-171224ISR

PATIENT
  Age: 7 Year
  Sex: Female

DRUGS (5)
  1. METHOTREXATE [Suspect]
     Indication: JUVENILE ARTHRITIS
     Route: 048
     Dates: start: 20030301
  2. METHOTREXATE [Suspect]
     Route: 048
     Dates: start: 20011206
  3. METHOTREXATE [Suspect]
     Route: 048
     Dates: start: 20060110
  4. METHOTREXATE [Suspect]
     Route: 058
     Dates: start: 20020521
  5. METHOTREXATE [Suspect]
     Route: 058
     Dates: start: 20050621

REACTIONS (2)
  - ARTHRITIS [None]
  - JUVENILE ARTHRITIS [None]
